FAERS Safety Report 5962484-7 (Version None)
Quarter: 2008Q4

REPORT INFORMATION
  Report Type: 
  Country: None (occurrence: None)
  Receive Date: 20081121
  Receipt Date: 20081111
  Transmission Date: 20090506
  Serious: Yes (Other)
  Sender: FDA-Public Use
  Company Number: JP-PFIZER INC-2008084276

PATIENT
  Sex: Male

DRUGS (3)
  1. XALATAN [Suspect]
     Indication: NORMAL TENSION GLAUCOMA
     Route: 031
     Dates: start: 20080709, end: 20080927
  2. HYALURONATE SODIUM [Concomitant]
     Indication: DRY EYE
     Route: 047
     Dates: start: 20080531
  3. CYANOCOBALAMIN [Concomitant]
     Route: 047
     Dates: start: 20080531

REACTIONS (4)
  - ASTHENOPIA [None]
  - EYE PRURITUS [None]
  - HEADACHE [None]
  - OCULAR HYPERAEMIA [None]
